FAERS Safety Report 8228797-3 (Version None)
Quarter: 2012Q1

REPORT INFORMATION
  Report Type: 
  Country: None (occurrence: None)
  Receive Date: 20120322
  Receipt Date: 20120316
  Transmission Date: 20120608
  Serious: Yes (Death, Hospitalization)
  Sender: FDA-Public Use
  Company Number: US-GLAXOSMITHKLINE-A0970190A

PATIENT
  Age: 82 Year
  Sex: Female

DRUGS (17)
  1. BACLOFEN [Concomitant]
  2. FOLIC ACID [Concomitant]
  3. LISINOPRIL [Concomitant]
  4. LOPID [Concomitant]
  5. XIFAXAN [Concomitant]
  6. ADVAIR DISKUS 100/50 [Suspect]
     Indication: CHRONIC OBSTRUCTIVE PULMONARY DISEASE
     Dosage: 1PUFF TWICE PER DAY
     Route: 055
     Dates: start: 20110301
  7. ASPIRIN [Concomitant]
  8. OSTEO BIFLEX [Concomitant]
  9. LYRICA [Concomitant]
  10. NEXIUM [Concomitant]
  11. TRAMADOL HCL [Concomitant]
  12. TYLENOL ARTHRITIS STRENGTH [Concomitant]
  13. GINGER ROOT [Concomitant]
  14. PROBIOTIC [Concomitant]
  15. FERROUS SULFATE TAB [Concomitant]
  16. VIT. D3 [Concomitant]
  17. VITAMIN B6 [Concomitant]

REACTIONS (1)
  - PNEUMONIA [None]
